FAERS Safety Report 8664799 (Version 3)
Quarter: 2013Q3

REPORT INFORMATION
  Report Type: Report from Study
  Country: US (occurrence: US)
  Receive Date: 20120713
  Receipt Date: 20130815
  Transmission Date: 20140515
  Serious: Yes (Hospitalization, Other)
  Sender: FDA-Public Use
  Company Number: US-ABBOTT-12P-163-0953334-00

PATIENT
  Age: 60 Year
  Sex: Female
  Weight: 89.89 kg

DRUGS (16)
  1. HUMIRA 40 MG/0.8 ML PEN [Suspect]
     Indication: PSORIASIS
     Dates: start: 20120208
  2. CHANTIX [Suspect]
     Indication: EX-TOBACCO USER
     Dates: start: 201204, end: 201205
  3. ZANAFLEX [Concomitant]
     Indication: MUSCLE SPASMS
     Dosage: 2 IN AM, 1 IN AFTERNOON AND 1 AT NIGHT
  4. ULTRAM [Concomitant]
     Indication: BACK PAIN
     Dosage: 2 IN AM, 2 IN AFTERNOON, + 2 IN EVENING
  5. LYRICA [Concomitant]
     Indication: BACK PAIN
     Dosage: 1 IN AM AND 1 IN EVENING
  6. BACLOFEN [Concomitant]
     Indication: BACK PAIN
  7. BACLOFEN [Concomitant]
     Indication: MUSCLE SPASMS
  8. ELAVIL [Concomitant]
     Indication: INSOMNIA
     Dosage: 2 TABS IN EVENING
  9. REMERON [Concomitant]
     Indication: INSOMNIA
     Dosage: 1 AT NIGHT
  10. REMERON [Concomitant]
     Indication: PAIN
  11. LIPITOR [Concomitant]
     Indication: BLOOD CHOLESTEROL
     Dosage: 40MG ONCE DAILY
  12. FOLIC ACID [Concomitant]
     Indication: BLOOD CHOLESTEROL
     Dosage: 1MG ONCE DAILY
  13. PERCOCET [Concomitant]
     Indication: BACK PAIN
  14. TRIAMCINOLONE [Concomitant]
     Indication: PSORIASIS
     Dosage: AT NIGHT TIME
     Route: 061
  15. CALCIPOTRIENE [Concomitant]
     Indication: PRODUCT USED FOR UNKNOWN INDICATION
     Dosage: DAY TIME
     Route: 061
  16. NEURONTIN [Concomitant]
     Indication: BACK PAIN

REACTIONS (19)
  - Feeling abnormal [Unknown]
  - Feeling jittery [Unknown]
  - Fall [Recovered/Resolved]
  - Pneumonia [Recovering/Resolving]
  - Wrist fracture [Recovered/Resolved]
  - Loss of consciousness [Unknown]
  - Moaning [Unknown]
  - Screaming [Recovered/Resolved]
  - Unevaluable event [Unknown]
  - Sleep disorder [Unknown]
  - Feeling abnormal [Recovered/Resolved]
  - Diarrhoea [Recovered/Resolved]
  - Sinus congestion [Not Recovered/Not Resolved]
  - Nasal dryness [Not Recovered/Not Resolved]
  - Sinus headache [Not Recovered/Not Resolved]
  - Nasal congestion [Not Recovered/Not Resolved]
  - Loss of consciousness [Recovered/Resolved]
  - Hallucination [Recovered/Resolved]
  - Hallucination [Unknown]
